FAERS Safety Report 7486298-4 (Version None)
Quarter: 2011Q2

REPORT INFORMATION
  Report Type: 
  Country: None (occurrence: None)
  Receive Date: 20110517
  Receipt Date: 20110506
  Transmission Date: 20111010
  Serious: Yes (Hospitalization)
  Sender: FDA-Public Use
  Company Number: BE-KINGPHARMUSA00001-K201100576

PATIENT
  Sex: Female

DRUGS (6)
  1. ALTACE [Suspect]
     Dosage: 1.25 MG, BID
     Dates: start: 20110127
  2. AREPANRIX H1N1 [Concomitant]
     Dosage: UNK
     Dates: start: 20091107, end: 20091107
  3. ALTACE [Suspect]
     Indication: HYPERTENSION
     Dosage: 5 MG, QD
     Route: 048
     Dates: start: 20101125, end: 20110127
  4. INDAPAMIDE [Concomitant]
     Dosage: UNK
     Dates: start: 20091115
  5. ATENOLOL [Suspect]
     Indication: HYPERTENSION
     Dosage: 100 MG, UNK
     Route: 048
     Dates: start: 20091115
  6. PROPAFENONE HYDROCHLORIDE [Suspect]
     Indication: PALPITATIONS
     Dosage: 300 MG, UNK
     Route: 048
     Dates: start: 20081001

REACTIONS (3)
  - HEART RATE DECREASED [None]
  - PALPITATIONS [None]
  - BRADYARRHYTHMIA [None]
